FAERS Safety Report 16082714 (Version 2)
Quarter: 2019Q1

REPORT INFORMATION
  Report Type: Spontaneous
  Country: GB (occurrence: GB)
  Receive Date: 20190318
  Receipt Date: 20190319
  Transmission Date: 20190418
  Serious: Yes (Hospitalization)
  Sender: FDA-Public Use
  Company Number: GB-TEVA-2019-GB-1024194

PATIENT
  Age: 17 Year
  Sex: Female

DRUGS (1)
  1. LIDOCAINE HYDROCHLORIDE INJECTION BP 2% [Suspect]
     Active Substance: LIDOCAINE HYDROCHLORIDE
     Indication: LOCAL ANAESTHESIA

REACTIONS (3)
  - Blister [Not Recovered/Not Resolved]
  - Swelling [Unknown]
  - Skin necrosis [Not Recovered/Not Resolved]

NARRATIVE: CASE EVENT DATE: 20190123
